FAERS Safety Report 7330087-8 (Version None)
Quarter: 2011Q1

REPORT INFORMATION
  Report Type: 
  Country: None (occurrence: None)
  Receive Date: 20110303
  Receipt Date: 20110221
  Transmission Date: 20110831
  Serious: Yes (Hospitalization)
  Sender: FDA-Public Use
  Company Number: US-ELI_LILLY_AND_COMPANY-US201102006548

PATIENT
  Sex: Female

DRUGS (1)
  1. FORTEO [Suspect]
     Dosage: 20 UG, DAILY (1/D)
     Route: 058
     Dates: start: 20100101

REACTIONS (6)
  - FALL [None]
  - DEHYDRATION [None]
  - URINARY TRACT INFECTION [None]
  - PAIN [None]
  - DIZZINESS [None]
  - HYPOTENSION [None]
